FAERS Safety Report 17502736 (Version 1)
Quarter: 2020Q1

REPORT INFORMATION
  Report Type: Spontaneous
  Country: US (occurrence: US)
  Receive Date: 20200305
  Receipt Date: 20200305
  Transmission Date: 20200409
  Serious: No
  Sender: FDA-Public Use
  Company Number: US-ROCHE-2239563

PATIENT
  Sex: Male

DRUGS (1)
  1. XOLAIR [Suspect]
     Active Substance: OMALIZUMAB
     Indication: IDIOPATHIC URTICARIA
     Route: 058
     Dates: start: 20181012

REACTIONS (5)
  - Migraine [Unknown]
  - Abdominal discomfort [Unknown]
  - Vomiting [Unknown]
  - Dizziness [Unknown]
  - Nausea [Unknown]
